FAERS Safety Report 23356824 (Version 1)
Quarter: 2024Q1

REPORT INFORMATION
  Report Type: Spontaneous
  Country: PE (occurrence: PE)
  Receive Date: 20240102
  Receipt Date: 20240102
  Transmission Date: 20240410
  Serious: Yes (Death, Hospitalization, Other)
  Sender: FDA-Public Use
  Company Number: PE-ADMA BIOLOGICS INC.-PE-2023ADM000254

PATIENT
  Age: 9 Year
  Sex: Female

DRUGS (1)
  1. HUMAN IMMUNOGLOBULIN G [Suspect]
     Active Substance: HUMAN IMMUNOGLOBULIN G
     Indication: Immunomodulatory therapy
     Dosage: 2 GRAM PER KILOGRAM, UNK
     Route: 042
     Dates: start: 2020

REACTIONS (4)
  - Acute lymphocytic leukaemia [Fatal]
  - Cerebral ischaemia [Unknown]
  - Hemiparesis [Unknown]
  - Off label use [Unknown]

NARRATIVE: CASE EVENT DATE: 20200101
